FAERS Safety Report 7263596-0 (Version None)
Quarter: 2011Q1

REPORT INFORMATION
  Report Type: 
  Country: None (occurrence: None)
  Receive Date: 20110130
  Receipt Date: 20101108
  Transmission Date: 20110831
  Serious: No
  Sender: FDA-Public Use
  Company Number: US-ABBOTT-10P-163-0683964-00

PATIENT
  Age: 37 Year
  Sex: Female

DRUGS (12)
  1. HUMIRA [Suspect]
     Indication: CROHN'S DISEASE
     Dates: start: 20091222
  2. ACIPHEX [Concomitant]
     Indication: GASTROOESOPHAGEAL REFLUX DISEASE
  3. CALCIUM 600 PLUS VITAMIN D [Concomitant]
     Indication: VITAMIN SUPPLEMENTATION
  4. FOSAMAX [Concomitant]
     Indication: OSTEOPOROSIS
  5. BACLOFEN [Concomitant]
     Indication: FIBROMYALGIA
  6. CALCIUM 600 PLUS VITAMIN D [Concomitant]
     Indication: MINERAL SUPPLEMENTATION
  7. EVISTA [Concomitant]
     Indication: OSTEOPOROSIS
  8. MAGNESIUM [Concomitant]
     Indication: MUSCLE SPASMS
  9. ZANTAC [Concomitant]
     Indication: GASTROOESOPHAGEAL REFLUX DISEASE
     Dosage: AT NIGHT
  10. ASA [Concomitant]
     Indication: ANTICOAGULANT THERAPY
  11. VIT B12 [Concomitant]
     Indication: ANAEMIA
  12. KLONOPIN [Concomitant]
     Indication: ANXIETY

REACTIONS (1)
  - TOOTHACHE [None]
